FAERS Safety Report 9334006 (Version 1)
Quarter: 2013Q2

REPORT INFORMATION
  Report Type: Spontaneous
  Country: US (occurrence: None)
  Receive Date: 20130604
  Receipt Date: 20130604
  Transmission Date: 20140414
  Serious: Yes (Other)
  Sender: FDA-Public Use
  Company Number: AUR-APL-2013-04612

PATIENT
  Age: 63 Year
  Sex: Male
  Weight: 89.5 kg

DRUGS (6)
  1. AMLODIPINE (AMLODIPINE) [Suspect]
     Indication: PRODUCT USED FOR UNKNOWN INDICATION
     Route: 048
     Dates: end: 20130214
  2. BENDROFLUMETHIAZIDE (BNENDROFLUMETHIAZIDE) [Concomitant]
  3. INDAPAMIDE (INDAPAMIDE) [Concomitant]
  4. LEVOTHYROXINE (LEVOTHYROXINE) [Concomitant]
  5. RAMIPRIL (RAMIPRIL) [Concomitant]
  6. SIMVASTATIN (SIMVASTATIN) [Concomitant]

REACTIONS (2)
  - Cutaneous vasculitis [None]
  - Vasculitic rash [None]
